FAERS Safety Report 11277623 (Version 1)
Quarter: 2015Q3

REPORT INFORMATION
  Report Type: Spontaneous
  Country: US (occurrence: US)
  Receive Date: 20150716
  Receipt Date: 20150716
  Transmission Date: 20151125
  Serious: Yes (Other)
  Sender: FDA-Public Use
  Company Number: US-SA-2015SA102449

PATIENT
  Age: 75 Year
  Sex: Male

DRUGS (1)
  1. ALLEGRA ALLERGY [Suspect]
     Active Substance: FEXOFENADINE HYDROCHLORIDE
     Dosage: TAKEN FROM: 8-12 MONTHS
     Route: 048

REACTIONS (5)
  - Dyspnoea [Unknown]
  - Eye irritation [Unknown]
  - Hypersensitivity [Unknown]
  - Lacrimation increased [Unknown]
  - Chronic obstructive pulmonary disease [Unknown]

NARRATIVE: CASE EVENT DATE: 2015
